FAERS Safety Report 12656755 (Version 1)
Quarter: 2016Q3

REPORT INFORMATION
  Report Type: Spontaneous
  Country: US (occurrence: US)
  Receive Date: 20160816
  Receipt Date: 20160816
  Transmission Date: 20161109
  Serious: No
  Sender: FDA-Public Use
  Company Number: US-PERRIGO-16US014531

PATIENT
  Age: 23 Year
  Sex: Male
  Weight: 64.85 kg

DRUGS (4)
  1. LORATADINE. [Suspect]
     Active Substance: LORATADINE
     Indication: SEASONAL ALLERGY
     Dosage: 10 MG, QD
     Route: 048
     Dates: start: 20160311, end: 20160320
  2. LORATADINE. [Suspect]
     Active Substance: LORATADINE
     Indication: SNEEZING
  3. LORATADINE. [Suspect]
     Active Substance: LORATADINE
     Indication: RHINORRHOEA
  4. LORATADINE. [Suspect]
     Active Substance: LORATADINE
     Indication: HYPERSENSITIVITY
     Dosage: 10 MG, BID
     Route: 048
     Dates: start: 20160321, end: 20160323

REACTIONS (2)
  - Inappropriate schedule of drug administration [Recovered/Resolved]
  - Drug ineffective [Unknown]

NARRATIVE: CASE EVENT DATE: 20160311
